FAERS Safety Report 15956160 (Version 3)
Quarter: 2019Q2

REPORT INFORMATION
  Report Type: Report from Study
  Country: KR (occurrence: KR)
  Receive Date: 20190213
  Receipt Date: 20190513
  Transmission Date: 20190711
  Serious: Yes (Death, Other)
  Sender: FDA-Public Use
  Company Number: KR-JNJFOC-20190212097

PATIENT
  Age: 86 Year
  Sex: Female

DRUGS (1)
  1. ULTRACET [Suspect]
     Active Substance: ACETAMINOPHEN\TRAMADOL HYDROCHLORIDE
     Indication: PRODUCT USED FOR UNKNOWN INDICATION
     Route: 048

REACTIONS (3)
  - Death [Fatal]
  - Toxicity to various agents [Fatal]
  - Overdose [Not Recovered/Not Resolved]

NARRATIVE: CASE EVENT DATE: 20141004
